FAERS Safety Report 5487006-9 (Version None)
Quarter: 2007Q4

REPORT INFORMATION
  Report Type: 
  Country: None (occurrence: None)
  Receive Date: 20071016
  Receipt Date: 20071005
  Transmission Date: 20080405
  Serious: Yes (Death)
  Sender: FDA-Public Use
  Company Number: LB-SANOFI-SYNTHELABO-A01200711338

PATIENT
  Sex: Female

DRUGS (2)
  1. ASPIRIN [Concomitant]
     Indication: ACUTE MYOCARDIAL INFARCTION
     Dosage: UNK
     Route: 065
     Dates: start: 20070801
  2. PLAVIX [Suspect]
     Indication: ACUTE MYOCARDIAL INFARCTION
     Route: 048
     Dates: start: 20070801

REACTIONS (1)
  - CHOKING [None]
